FAERS Safety Report 20044220 (Version 4)
Quarter: 2022Q1

REPORT INFORMATION
  Report Type: Report from Study
  Country: IT (occurrence: IT)
  Receive Date: 20211108
  Receipt Date: 20220127
  Transmission Date: 20220424
  Serious: Yes (Hospitalization)
  Sender: FDA-Public Use
  Company Number: None

PATIENT
  Age: 59 Year
  Sex: Female
  Weight: 62 kg

DRUGS (6)
  1. BEVACIZUMAB [Suspect]
     Active Substance: BEVACIZUMAB
     Indication: Adenocarcinoma of colon
     Dosage: 450 MG, CYCLIC
     Route: 042
     Dates: start: 20191216, end: 20210324
  2. FLUIMUCIL [Concomitant]
     Active Substance: ACETYLCYSTEINE
     Indication: Rhinitis
     Dosage: 300 MG, AS NEEDED
     Route: 055
  3. IRINOTECAN HYDROCHLORIDE TRIHYDRATE [IRINOTECAN MONOHYDROCHLORIDE TRIH [Concomitant]
     Indication: Adenocarcinoma of colon
     Dosage: 154 MG, CYCLIC
     Route: 042
     Dates: start: 20210323, end: 20211018
  4. ACETAMINOPHEN [Concomitant]
     Active Substance: ACETAMINOPHEN
     Indication: Pain
     Dosage: 500 MG, AS NEEDED
     Route: 048
  5. LASIX [Concomitant]
     Active Substance: FUROSEMIDE
     Indication: Oedema
     Dosage: 25 MG, AS NEEDED
     Route: 048
  6. BIORINIL [Concomitant]
     Indication: Rhinitis
     Dosage: UNK
     Route: 055

REACTIONS (2)
  - Anaemia [Recovering/Resolving]
  - Haemorrhoidal haemorrhage [Recovering/Resolving]

NARRATIVE: CASE EVENT DATE: 20210208
